FAERS Safety Report 5481699-8 (Version None)
Quarter: 2007Q4

REPORT INFORMATION
  Report Type: 
  Country: None (occurrence: None)
  Receive Date: 20071010
  Receipt Date: 20071001
  Transmission Date: 20080405
  Serious: Yes (Hospitalization)
  Sender: FDA-Public Use
  Company Number: HQWYE267321SEP07

PATIENT
  Sex: Male
  Weight: 89 kg

DRUGS (13)
  1. TEMSIROLIMUS [Suspect]
     Indication: LYMPHOMA
     Route: 042
     Dates: start: 20070705, end: 20070913
  2. SUCRALFATE [Concomitant]
     Indication: PROPHYLAXIS
     Route: 048
     Dates: start: 20070712
  3. CETIRIZINE HCL [Concomitant]
     Indication: PRURITUS
     Route: 048
     Dates: start: 20070830
  4. CORSODYL [Concomitant]
     Indication: PROPHYLAXIS
     Route: 048
     Dates: start: 20070712
  5. SPIRONOLACTONE [Concomitant]
     Indication: HYPERTENSION
     Route: 048
     Dates: start: 20020101, end: 20070928
  6. COENZYME Q10 [Concomitant]
     Dosage: 1 UNIT EVERY 1 DAY
     Route: 048
     Dates: start: 20020101
  7. DOXAZOSIN MESYLATE [Concomitant]
     Indication: HYPERTENSION
     Route: 048
     Dates: start: 20020101
  8. VALSARTAN [Concomitant]
     Indication: HYPERTENSION
     Route: 048
     Dates: start: 20020101
  9. METOCLOPRAMIDE [Concomitant]
     Indication: PROPHYLAXIS
     Route: 048
     Dates: start: 20070823
  10. LANSOPRAZOLE [Concomitant]
     Indication: NAUSEA
     Route: 048
     Dates: start: 20070906
  11. GRANISETRON  HCL [Concomitant]
     Indication: NAUSEA
     Route: 048
     Dates: start: 20070906
  12. LEVOMEPROMAZINE [Concomitant]
     Indication: NAUSEA
     Dosage: UNKNOWN
     Dates: start: 20070705
  13. ATENOLOL [Concomitant]
     Indication: HYPERTENSION
     Route: 048
     Dates: start: 20020101

REACTIONS (1)
  - LETHARGY [None]
